FAERS Safety Report 17713029 (Version 1)
Quarter: 2020Q2

REPORT INFORMATION
  Report Type: Spontaneous
  Country: US (occurrence: US)
  Receive Date: 20200427
  Receipt Date: 20200427
  Transmission Date: 20200714
  Serious: Yes (Other)
  Sender: FDA-Public Use
  Company Number: None

PATIENT
  Age: 49 Year
  Sex: Female
  Weight: 63 kg

DRUGS (7)
  1. ZOLOFT [Concomitant]
     Active Substance: SERTRALINE HYDROCHLORIDE
  2. IBRUPROFEN [Concomitant]
     Active Substance: IBUPROFEN
  3. KRATOM - SPECIFICALLY ^GREEN MALAYSIAN^ [Suspect]
     Active Substance: HERBALS\MITRAGYNINE
     Indication: FATIGUE
     Route: 048
     Dates: start: 20181201, end: 20200422
  4. NAC [ACETYLCYSTEINE] [Concomitant]
     Active Substance: ACETYLCYSTEINE
  5. PROBIOTICS [Concomitant]
     Active Substance: PROBIOTICS NOS
  6. KLONOPIN [Concomitant]
     Active Substance: CLONAZEPAM
  7. KRATOM - SPECIFICALLY ^GREEN MALAYSIAN^ [Suspect]
     Active Substance: HERBALS\MITRAGYNINE
     Indication: DEPRESSION
     Route: 048
     Dates: start: 20181201, end: 20200422

REACTIONS (8)
  - Drug dependence [None]
  - Morbid thoughts [None]
  - Irritability [None]
  - Compulsive shopping [None]
  - Drug withdrawal syndrome [None]
  - Insomnia [None]
  - Restless legs syndrome [None]
  - Depression [None]

NARRATIVE: CASE EVENT DATE: 20200422
